FAERS Safety Report 23857213 (Version 2)
Quarter: 2024Q4

REPORT INFORMATION
  Report Type: Spontaneous
  Country: FR (occurrence: FR)
  Receive Date: 20240515
  Receipt Date: 20241020
  Transmission Date: 20250114
  Serious: Yes (Congenital Anomaly, Other)
  Sender: AUROBINDO
  Company Number: FR-AFSSAPS-PO2024000486

PATIENT
  Age: 14 Week
  Sex: Male

DRUGS (5)
  1. OXAZEPAM [Suspect]
     Active Substance: OXAZEPAM
     Indication: Personality disorder
     Dosage: 30 MILLIGRAM, ONCE A DAY
     Route: 064
     Dates: start: 20231106
  2. MIRTAZAPINE [Suspect]
     Active Substance: MIRTAZAPINE
     Indication: Personality disorder
     Dosage: 15 MILLIGRAM, ONCE A DAY
     Route: 064
     Dates: start: 20231106
  3. OLANZAPINE [Suspect]
     Active Substance: OLANZAPINE
     Indication: Personality disorder
     Dosage: 22.5 MILLIGRAM, ONCE A DAY
     Route: 064
     Dates: start: 20240202
  4. TRIMEPRAZINE [Suspect]
     Active Substance: TRIMEPRAZINE
     Indication: Personality disorder
     Dosage: 20 MILLIGRAM, ONCE A DAY
     Route: 064
     Dates: start: 20231106
  5. PIPAMPERONE HYDROCHLORIDE [Suspect]
     Active Substance: PIPAMPERONE HYDROCHLORIDE
     Indication: Personality disorder
     Dosage: 40 MILLIGRAM, ONCE A DAY
     Route: 064
     Dates: start: 20231106

REACTIONS (2)
  - Encephalocele [Not Recovered/Not Resolved]
  - Maternal exposure during pregnancy [Not Recovered/Not Resolved]

NARRATIVE: CASE EVENT DATE: 20231106
